FAERS Safety Report 8951215 (Version 2)
Quarter: 2013Q1

REPORT INFORMATION
  Report Type: Spontaneous
  Country: ZA (occurrence: ZA)
  Receive Date: 20121207
  Receipt Date: 20130326
  Transmission Date: 20140127
  Serious: Yes (Hospitalization, Other)
  Sender: FDA-Public Use
  Company Number: ZA-NOVOPROD-365568

PATIENT
  Age: 38 Year
  Sex: Female
  Weight: 57 kg

DRUGS (7)
  1. VICTOZA [Suspect]
     Indication: TYPE 1 DIABETES MELLITUS
     Dosage: 0.6 MG, QD
     Route: 058
     Dates: start: 20121105
  2. VICTOZA [Suspect]
     Dosage: 1.2 MG, QD
     Route: 058
     Dates: end: 20121119
  3. STEMETIL                           /00013301/ [Concomitant]
     Indication: VOMITING
     Dosage: UNK
     Route: 065
  4. LANTUS [Concomitant]
     Dosage: 24 IU, QD
     Route: 065
  5. LANTUS [Concomitant]
     Dosage: UNK
     Route: 065
  6. HUMALOG [Concomitant]
     Dosage: UNK
     Route: 065
  7. HUMALOG [Concomitant]
     Dosage: UNK
     Route: 065

REACTIONS (2)
  - Diabetic ketoacidotic hyperglycaemic coma [Recovered/Resolved]
  - Vomiting [Recovered/Resolved]
